FAERS Safety Report 20485859 (Version 2)
Quarter: 2022Q1

REPORT INFORMATION
  Report Type: Spontaneous
  Country: ID (occurrence: ID)
  Receive Date: 20220217
  Receipt Date: 20220304
  Transmission Date: 20220423
  Serious: Yes (Other)
  Sender: FDA-Public Use
  Company Number: ID-TEVA-2022-ID-2007119

PATIENT
  Age: 47 Year
  Sex: Female

DRUGS (10)
  1. DOXORUBICIN [Suspect]
     Active Substance: DOXORUBICIN
     Indication: Primary breast lymphoma
     Dosage: EVERY THREE WEEKS FOR SIX CYCLES
     Route: 065
  2. DOXORUBICIN [Suspect]
     Active Substance: DOXORUBICIN
     Indication: Diffuse large B-cell lymphoma
  3. RITUXIMAB [Suspect]
     Active Substance: RITUXIMAB
     Indication: Primary breast lymphoma
     Dosage: EVERY THREE WEEKS FOR SIX CYCLES
     Route: 065
  4. RITUXIMAB [Suspect]
     Active Substance: RITUXIMAB
     Indication: Diffuse large B-cell lymphoma
  5. CYCLOPHOSPHAMIDE [Suspect]
     Active Substance: CYCLOPHOSPHAMIDE
     Indication: Primary breast lymphoma
     Dosage: EVERY THREE WEEKS FOR SIX CYCLES
     Route: 065
  6. CYCLOPHOSPHAMIDE [Suspect]
     Active Substance: CYCLOPHOSPHAMIDE
     Indication: Diffuse large B-cell lymphoma
  7. VINCRISTINE [Suspect]
     Active Substance: VINCRISTINE
     Indication: Primary breast lymphoma
     Dosage: EVERY THREE WEEKS FOR SIX CYCLES
     Route: 065
  8. VINCRISTINE [Suspect]
     Active Substance: VINCRISTINE
     Indication: Diffuse large B-cell lymphoma
  9. PREDNISONE [Suspect]
     Active Substance: PREDNISONE
     Indication: Primary breast lymphoma
     Dosage: EVERY THREE WEEKS FOR SIX CYCLES
     Route: 065
  10. PREDNISONE [Suspect]
     Active Substance: PREDNISONE
     Indication: Diffuse large B-cell lymphoma

REACTIONS (5)
  - Neutropenia [Unknown]
  - Neuropathy peripheral [Unknown]
  - Nausea [Unknown]
  - Vomiting [Unknown]
  - Alopecia [Unknown]
